FAERS Safety Report 25659930 (Version 1)
Quarter: 2025Q3

REPORT INFORMATION
  Report Type: Spontaneous
  Country: US (occurrence: None)
  Receive Date: 20250807
  Receipt Date: 20250807
  Transmission Date: 20251021
  Serious: Yes (Other)
  Sender: FDA-CTU
  Company Number: None

PATIENT
  Age: 63 Year
  Sex: Female
  Weight: 76 kg

DRUGS (13)
  1. ENBREL [Suspect]
     Active Substance: ETANERCEPT
     Indication: Rheumatoid arthritis
     Route: 058
     Dates: start: 20250513, end: 20250624
  2. METHOTREXATE [Concomitant]
     Active Substance: METHOTREXATE
  3. PREDNISONE [Concomitant]
     Active Substance: PREDNISONE
  4. IBUPROFEN [Concomitant]
     Active Substance: IBUPROFEN
  5. Polymyxin B-trimethoprim ophth [Concomitant]
  6. ZONISAMIDE [Concomitant]
     Active Substance: ZONISAMIDE
  7. TOPIRAMATE [Concomitant]
     Active Substance: TOPIRAMATE
  8. SIMVASTATIN [Concomitant]
     Active Substance: SIMVASTATIN
  9. GABAPENTIN [Concomitant]
     Active Substance: GABAPENTIN
  10. FUROSEMIDE [Concomitant]
     Active Substance: FUROSEMIDE
  11. prednisolone ophth [Concomitant]
  12. ZOLPIDEM [Concomitant]
     Active Substance: ZOLPIDEM TARTRATE
  13. CLORAZEPATE DIPOTASSIUM [Concomitant]
     Active Substance: CLORAZEPATE DIPOTASSIUM

REACTIONS (4)
  - Swelling [None]
  - Lip blister [None]
  - Blister [None]
  - Herpes simplex reactivation [None]

NARRATIVE: CASE EVENT DATE: 20250527
